FAERS Safety Report 24585338 (Version 1)
Quarter: 2024Q4

REPORT INFORMATION
  Report Type: Spontaneous
  Country: GB (occurrence: GB)
  Receive Date: 20241106
  Receipt Date: 20241106
  Transmission Date: 20250114
  Serious: Yes (Other)
  Sender: JOHNSON AND JOHNSON
  Company Number: None

PATIENT
  Age: 33 Year
  Sex: Female

DRUGS (1)
  1. TOPAMAX [Suspect]
     Active Substance: TOPIRAMATE
     Indication: Adverse drug reaction
     Route: 065
     Dates: start: 20211021

REACTIONS (2)
  - Aborted pregnancy [Recovered/Resolved]
  - Maternal exposure during pregnancy [Unknown]
